FAERS Safety Report 16236878 (Version 1)
Quarter: 2019Q2

REPORT INFORMATION
  Report Type: Report from Study
  Country: IT (occurrence: IT)
  Receive Date: 20190425
  Receipt Date: 20190425
  Transmission Date: 20190711
  Serious: Yes (Hospitalization)
  Sender: FDA-Public Use
  Company Number: IT-ACCORD-123848

PATIENT
  Age: 79 Year
  Sex: Female

DRUGS (10)
  1. BENDAMUSTINE/BENDAMUSTINE HYDROCHLORIDE [Suspect]
     Active Substance: BENDAMUSTINE HYDROCHLORIDE
     Indication: B-CELL LYMPHOMA
     Dosage: ALSO RECEIVED 25 MG FROM 15-MAY-2017 TO 16-MAY-2017
     Route: 041
     Dates: start: 20170515, end: 20170516
  2. TOTALIP [Concomitant]
     Active Substance: ATORVASTATIN
     Indication: DYSLIPIDAEMIA
     Dosage: STRENGTH 20 MG
     Route: 048
  3. LORAZEPAM LEDERLE [Concomitant]
  4. NATECAL D3 [Concomitant]
     Active Substance: CALCIUM CARBONATE\CHOLECALCIFEROL
     Dosage: STRENGTH 600 MG + 400 U.I.
  5. SPIRIVA [Concomitant]
     Active Substance: TIOTROPIUM BROMIDE MONOHYDRATE
     Dosage: STRENGTH 18 MICROGRAMS, POWDER FOR INHALATION
  6. SERETIDE [Concomitant]
     Active Substance: FLUTICASONE PROPIONATE\SALMETEROL XINAFOATE
     Dosage: STRENGTH 25 MICROGRAMS / 125 MICROGRAMS /DOSE SUSPENSION PRESSURIZED
  7. LASIX [Concomitant]
     Active Substance: FUROSEMIDE
     Indication: HYPERTENSION
     Dosage: STRENGTH 25 MG
     Route: 048
  8. METFORMIN [Concomitant]
     Active Substance: METFORMIN HYDROCHLORIDE
     Indication: DIABETES MELLITUS
     Route: 048
  9. ANTRA [Concomitant]
     Active Substance: OMEPRAZOLE
     Dosage: STRENGTH 10 MG
     Route: 048
  10. MABTHERA [Interacting]
     Active Substance: RITUXIMAB
     Indication: B-CELL LYMPHOMA
     Dosage: STRENGTH 500 MG
     Route: 041
     Dates: start: 20170518, end: 20170518

REACTIONS (3)
  - Platelet count decreased [Unknown]
  - Aplasia [Unknown]
  - Drug interaction [Unknown]

NARRATIVE: CASE EVENT DATE: 20170530
